FAERS Safety Report 8361119-6 (Version None)
Quarter: 2012Q2

REPORT INFORMATION
  Report Type: 
  Country: None (occurrence: None)
  Receive Date: 20120515
  Receipt Date: 20120508
  Transmission Date: 20120825
  Serious: Yes (Death, Other)
  Sender: FDA-Public Use
  Company Number: AR-GENZYME-CLOF-1002144

PATIENT
  Age: 7 Year
  Sex: Female

DRUGS (6)
  1. CLOLAR [Suspect]
     Dosage: 40 MG/M2, QDX5
     Route: 042
  2. CYCLOPHOSPHAMIDE [Suspect]
     Dosage: 440 MG/M2, QDX5
     Route: 042
  3. ETOPOSIDE [Suspect]
     Indication: ACUTE LYMPHOCYTIC LEUKAEMIA RECURRENT
     Dosage: 150 MG/M2, QDX5
     Route: 042
  4. CYCLOPHOSPHAMIDE [Suspect]
     Indication: ACUTE LYMPHOCYTIC LEUKAEMIA RECURRENT
     Dosage: 440 MG/M2, QDX5
     Route: 042
  5. CLOLAR [Suspect]
     Indication: ACUTE LYMPHOCYTIC LEUKAEMIA RECURRENT
     Dosage: 40 MG/M2, QDX5
     Route: 042
  6. ETOPOSIDE [Suspect]
     Dosage: 150 MG/M2, QDX5
     Route: 042

REACTIONS (3)
  - ACUTE LYMPHOCYTIC LEUKAEMIA [None]
  - PIGMENTATION DISORDER [None]
  - BONE MARROW FAILURE [None]
